FAERS Safety Report 9768625 (Version 2)
Quarter: 2013Q4

REPORT INFORMATION
  Report Type: Report from Study
  Country: US (occurrence: US)
  Receive Date: 20131218
  Receipt Date: 20131220
  Transmission Date: 20140711
  Serious: Yes (Death)
  Sender: FDA-Public Use
  Company Number: US-ROCHE-1321140

PATIENT
  Age: 83 Year
  Sex: Male
  Weight: 74 kg

DRUGS (12)
  1. AVASTIN [Suspect]
     Indication: HEREDITARY HAEMORRHAGIC TELANGIECTASIA
     Dosage: 5 MG/KG
     Route: 041
     Dates: start: 201211
  2. AVASTIN [Suspect]
     Route: 042
     Dates: start: 20130717
  3. AVASTIN [Suspect]
     Route: 042
     Dates: start: 20130731
  4. AVASTIN [Suspect]
     Route: 042
     Dates: start: 20130814
  5. AVASTIN [Suspect]
     Route: 042
     Dates: start: 20131120
  6. AVASTIN [Suspect]
     Route: 042
     Dates: start: 20131204
  7. VENOFER (UNITED STATES) [Concomitant]
     Indication: IRON DEFICIENCY
     Route: 065
     Dates: start: 20121114, end: 20121218
  8. VENOFER (UNITED STATES) [Concomitant]
     Route: 065
     Dates: start: 20130123, end: 20130528
  9. VENOFER (UNITED STATES) [Concomitant]
     Route: 065
     Dates: start: 20130828, end: 20131001
  10. VENOFER (UNITED STATES) [Concomitant]
     Route: 065
     Dates: start: 20131120
  11. PROCRIT [Concomitant]
     Indication: RENAL FAILURE CHRONIC
     Route: 065
     Dates: start: 20121214, end: 20130109
  12. PROCRIT [Concomitant]
     Indication: ANAEMIA

REACTIONS (1)
  - Intestinal infarction [Fatal]
